FAERS Safety Report 21012284 (Version 1)
Quarter: 2022Q3

REPORT INFORMATION
  Report Type: Report from Study
  Country: US (occurrence: US)
  Receive Date: 20220627
  Receipt Date: 20220627
  Transmission Date: 20221027
  Serious: No
  Sender: FDA-Public Use
  Company Number: US-NOVARTISTESTPH-NVSC2022US145930

PATIENT
  Sex: Male
  Weight: 170 kg

DRUGS (1)
  1. MESALAMINE [Suspect]
     Active Substance: MESALAMINE
     Indication: Diarrhoea
     Route: 065

REACTIONS (1)
  - Therapeutic product effect decreased [Unknown]
